FAERS Safety Report 7827008-8 (Version None)
Quarter: 2011Q4

REPORT INFORMATION
  Report Type: 
  Country: None (occurrence: None)
  Receive Date: 20111020
  Receipt Date: 20111006
  Transmission Date: 20120403
  Serious: Yes (Hospitalization)
  Sender: FDA-Public Use
  Company Number: US-BAYER-2011-015086

PATIENT
  Age: 22 Year
  Sex: Female
  Weight: 68 kg

DRUGS (19)
  1. YAZ [Suspect]
     Indication: ORAL CONTRACEPTION
     Dosage: UNK
     Dates: start: 20071101, end: 20080201
  2. PHENERGAN HCL [Concomitant]
     Indication: PAIN
  3. TORADOL [Concomitant]
     Dosage: 60 MG, UNK
     Route: 030
     Dates: start: 20080209
  4. NITROFURANTOIN [Concomitant]
     Dosage: 10 MG, BID
     Route: 048
     Dates: start: 20080201
  5. OXYCODONE HCL [Concomitant]
  6. ZOLOFT [Concomitant]
  7. UNASYN [Concomitant]
     Dosage: 1.5 G, UNK
     Route: 042
     Dates: start: 20080209
  8. OXYCODONE HCL [Concomitant]
     Dosage: UNK
     Dates: start: 20080201
  9. LABETALOL HCL [Concomitant]
  10. LEVOTHYROXINE SODIUM [Concomitant]
  11. LEVAQUIN [Concomitant]
     Indication: URINARY TRACT INFECTION
  12. COLACE [Concomitant]
  13. MIRALAX [Concomitant]
  14. LOPERAMIDE HCL [Concomitant]
     Dosage: 2 MG, UNK
  15. NORVASC [Concomitant]
  16. TYLENOL-500 [Concomitant]
  17. DILAUDID [Concomitant]
     Dosage: UNK UNK, BID,1-2 MG EVERY 2 HOURS
     Route: 042
     Dates: start: 20080209
  18. ALBUTEROL [Concomitant]
  19. PRILOSEC [Concomitant]

REACTIONS (9)
  - PULMONARY EMBOLISM [None]
  - MENTAL DISORDER [None]
  - PAIN [None]
  - LUNG DISORDER [None]
  - ANXIETY [None]
  - GENERAL PHYSICAL HEALTH DETERIORATION [None]
  - DEEP VEIN THROMBOSIS [None]
  - INJURY [None]
  - EMOTIONAL DISTRESS [None]
